FAERS Safety Report 25570610 (Version 1)
Quarter: 2025Q3

REPORT INFORMATION
  Report Type: Spontaneous
  Country: US (occurrence: US)
  Receive Date: 20250717
  Receipt Date: 20250717
  Transmission Date: 20251021
  Serious: Yes (Hospitalization, Other)
  Sender: AMGEN
  Company Number: US-AMGEN-USASP2025138198

PATIENT
  Age: 77 Year
  Sex: Female

DRUGS (2)
  1. REPATHA [Suspect]
     Active Substance: EVOLOCUMAB
     Indication: Blood cholesterol abnormal
     Dosage: 140 MILLIGRAM, Q2WK
     Route: 058
  2. LIPITOR [Concomitant]
     Active Substance: ATORVASTATIN CALCIUM
     Route: 065

REACTIONS (13)
  - Hypoaesthesia [Unknown]
  - Hemiparesis [Unknown]
  - Asthenia [Unknown]
  - Nausea [Unknown]
  - Dizziness [Unknown]
  - Facial paralysis [Unknown]
  - Autoimmune disorder [Unknown]
  - Blood calcium increased [Unknown]
  - Fall [Unknown]
  - Memory impairment [Unknown]
  - Device difficult to use [Unknown]
  - Drug dose omission by device [Unknown]
  - Limb injury [Unknown]

NARRATIVE: CASE EVENT DATE: 20250625
